FAERS Safety Report 15859396 (Version 1)
Quarter: 2018Q4

REPORT INFORMATION
  Report Type: Spontaneous
  Country: US (occurrence: US)
  Receive Date: 20181228
  Receipt Date: 20181228
  Transmission Date: 20190205
  Serious: Yes (Hospitalization, Disabling, Other)
  Sender: FDA-Public Use
  Company Number: None

PATIENT
  Age: 83 Year
  Sex: Female
  Weight: 56.7 kg

DRUGS (4)
  1. VITAMIN D [Concomitant]
     Active Substance: CHOLECALCIFEROL
  2. AMIODARONE [Suspect]
     Active Substance: AMIODARONE
     Indication: ATRIAL FIBRILLATION
     Dosage: ?          QUANTITY:200 MG MILLIGRAM(S);?
     Route: 048
     Dates: start: 20180115, end: 20180831
  3. ASPIRIN. [Concomitant]
     Active Substance: ASPIRIN
  4. THYROID [Concomitant]
     Active Substance: LEVOTHYROXINE\LIOTHYRONINE

REACTIONS (12)
  - Nausea [None]
  - Skin discolouration [None]
  - Hypotension [None]
  - Heart rate decreased [None]
  - Visual impairment [None]
  - Dysarthria [None]
  - Loss of personal independence in daily activities [None]
  - Facial paralysis [None]
  - Gait inability [None]
  - Decreased appetite [None]
  - Thyroid disorder [None]
  - Wheelchair user [None]

NARRATIVE: CASE EVENT DATE: 20180201
